FAERS Safety Report 13334100 (Version 24)
Quarter: 2019Q2

REPORT INFORMATION
  Report Type: Report from Study
  Country: None (occurrence: JP)
  Receive Date: 20170314
  Receipt Date: 20190516
  Transmission Date: 20190711
  Serious: Yes (Hospitalization)
  Sender: FDA-Public Use
  Company Number: JP-ABBVIE-17P-087-1902427-00

PATIENT
  Age: 58 Year
  Sex: Male
  Weight: 58 kg

DRUGS (58)
  1. DUODOPA [Suspect]
     Active Substance: CARBIDOPA\LEVODOPA
     Dosage: MD: 9 ML, CD: 4.5 ML/HR X 16 HR, ED: 2.6 ML/UNIT X 2
     Route: 050
     Dates: start: 20170419, end: 20170425
  2. DUODOPA [Suspect]
     Active Substance: CARBIDOPA\LEVODOPA
     Dosage: MD: 9 ML, CD: 4.1 ML/HR X 13 HR, ED: 2.6 ML/UNIT X 3
     Route: 050
     Dates: start: 20171226, end: 20180227
  3. ROTIGOTINE [Concomitant]
     Active Substance: ROTIGOTINE
     Indication: PRODUCT USED FOR UNKNOWN INDICATION
     Route: 062
     Dates: end: 20170328
  4. ZONISAMIDE. [Concomitant]
     Active Substance: ZONISAMIDE
     Indication: PRODUCT USED FOR UNKNOWN INDICATION
     Route: 048
     Dates: start: 20170228, end: 20170404
  5. ZONISAMIDE. [Concomitant]
     Active Substance: ZONISAMIDE
     Route: 048
     Dates: start: 20170405, end: 20170531
  6. QUETIAPINE FUMARATE. [Concomitant]
     Active Substance: QUETIAPINE FUMARATE
     Indication: PRODUCT USED FOR UNKNOWN INDICATION
     Dates: start: 20170217, end: 20170423
  7. DOPACOL [Concomitant]
     Active Substance: CARBIDOPA\LEVODOPA
     Route: 048
     Dates: start: 20170912, end: 20170912
  8. ENEVO [Concomitant]
     Indication: PROPHYLAXIS
     Route: 048
     Dates: start: 20171025, end: 20171025
  9. DUODOPA [Suspect]
     Active Substance: CARBIDOPA\LEVODOPA
     Dosage: MD: 8 ML, CD: 2.2 ML/HR X 16 HR, ED: 1 ML/UNIT X 1
     Route: 050
     Dates: start: 20170216, end: 20170217
  10. DUODOPA [Suspect]
     Active Substance: CARBIDOPA\LEVODOPA
     Dosage: MD: 6 ML, CD: 3.3 ML/HR X 16 HR, ED: 1.5 ML/UNIT X 1
     Route: 050
     Dates: start: 20170221, end: 20170223
  11. DUODOPA [Suspect]
     Active Substance: CARBIDOPA\LEVODOPA
     Dosage: MD: 9 ML, CD: 4.4 ML/HR X 16 HR, ED: 3 ML/UNIT X 2
     Route: 050
     Dates: start: 20170405, end: 20170411
  12. DUODOPA [Suspect]
     Active Substance: CARBIDOPA\LEVODOPA
     Dosage: MD: 9 ML, CD: 4 ML/HR X 16 HR, ED: 2.6 ML/UNIT X 2
     Route: 050
     Dates: start: 20170502, end: 20170515
  13. ETIZOLAM [Concomitant]
     Active Substance: ETIZOLAM
     Indication: PRODUCT USED FOR UNKNOWN INDICATION
     Route: 048
  14. PYRIDOXAL PHOSPHATE HYDRATE [Concomitant]
     Route: 048
     Dates: start: 20170614, end: 20171225
  15. BENFOTIAMINE [Concomitant]
     Active Substance: BENFOTIAMINE
     Indication: PROPHYLAXIS
     Route: 048
     Dates: start: 20170517, end: 20170524
  16. VITAMIN B COMPLEX [Concomitant]
     Active Substance: CYANOCOBALAMIN\DEXPANTHENOL\NIACINAMIDE\PYRIDOXINE HYDROCHLORIDE\RIBOFLAVIN 5^-PHOSPHATE SODIUM\THIAMINE HYDROCHLORIDE\VITAMIN B COMPLEX
     Indication: PROPHYLAXIS
     Route: 048
     Dates: start: 20170525
  17. DUODOPA [Suspect]
     Active Substance: CARBIDOPA\LEVODOPA
     Dosage: MD: 8 ML, CD: 2.4 ML/HR X 16 HR, ED: 1 ML/UNIT X 1
     Route: 050
     Dates: start: 20170217, end: 20170217
  18. ROTIGOTINE [Concomitant]
     Active Substance: ROTIGOTINE
     Route: 062
     Dates: start: 20170511
  19. PYRIDOXAL PHOSPHATE HYDRATE [Concomitant]
     Indication: PRODUCT USED FOR UNKNOWN INDICATION
     Dates: start: 20170321, end: 20170524
  20. FURSULTIAMINE [Concomitant]
     Active Substance: FURSULTIAMINE
     Indication: PRODUCT USED FOR UNKNOWN INDICATION
     Route: 048
     Dates: start: 20170614, end: 20171225
  21. DUODOPA [Suspect]
     Active Substance: CARBIDOPA\LEVODOPA
     Indication: PRODUCT USED FOR UNKNOWN INDICATION
     Dosage: MD: 8 ML, CD: 2 ML/HR X 16 HR
     Route: 050
     Dates: start: 20170216, end: 20170216
  22. DUODOPA [Suspect]
     Active Substance: CARBIDOPA\LEVODOPA
     Dosage: MD: 7 ML, CD: 3.1 ML/HR X 16 HR, ED: 1 ML/UNIT X 1
     Route: 050
     Dates: start: 20170221, end: 20170221
  23. DUODOPA [Suspect]
     Active Substance: CARBIDOPA\LEVODOPA
     Dosage: MD: 6 ML, CD: 4.1 ML/HR X 16 HR, ED: 2 ML/UNIT X 2
     Route: 050
     Dates: start: 20170301, end: 20170302
  24. DUODOPA [Suspect]
     Active Substance: CARBIDOPA\LEVODOPA
     Dosage: MD: 9 ML, CD: 4 ML/HR X 13 HR, ED: 2.6 ML/UNIT X 3
     Route: 050
     Dates: start: 20170516, end: 20170912
  25. DUODOPA [Suspect]
     Active Substance: CARBIDOPA\LEVODOPA
     Dosage: MD: 9.5 ML, CD: 4.2 ML/HR X 13 HR, ED: 3.0 ML/UNIT X 3
     Route: 050
     Dates: start: 20181225
  26. QUETIAPINE FUMARATE. [Concomitant]
     Active Substance: QUETIAPINE FUMARATE
     Dates: start: 20170508
  27. DOPACOL [Concomitant]
     Active Substance: CARBIDOPA\LEVODOPA
     Indication: PARKINSON^S DISEASE
     Dosage: THE AMOUNT OF LEVODOPA CONVERTED TO 16-HOUR DOSE DURING DAYTIME WAS 200.
     Route: 048
     Dates: start: 20170516, end: 2017
  28. DUODOPA [Suspect]
     Active Substance: CARBIDOPA\LEVODOPA
     Dosage: MD: 6 ML, CD: 3.5 ML/HR X 16 HR, ED: 2 ML/UNIT X 1
     Route: 050
     Dates: start: 20170223, end: 20170223
  29. DUODOPA [Suspect]
     Active Substance: CARBIDOPA\LEVODOPA
     Dosage: MD: 6 ML, CD: 3.7 ML/HR X 16 HR, ED: 2 ML/UNIT X 1
     Route: 050
     Dates: start: 20170224, end: 20170227
  30. DUODOPA [Suspect]
     Active Substance: CARBIDOPA\LEVODOPA
     Dosage: MD: 6 ML, CD: 4.4 ML/HR X 16 HR, ED: 2 ML/UNIT X 2
     Route: 050
     Dates: start: 20170302, end: 20170303
  31. DUODOPA [Suspect]
     Active Substance: CARBIDOPA\LEVODOPA
     Dosage: MD: 9 ML, CD: 4.4 ML/HR X 16 HR, ED: 3 ML/UNIT X 2
     Route: 050
     Dates: start: 20170311, end: 20170317
  32. DUODOPA [Suspect]
     Active Substance: CARBIDOPA\LEVODOPA
     Dosage: MD: 9 ML, CD: 4.4 ML/HR X 16 HR, ED: 2.6 ML/UNIT X 2
     Route: 050
     Dates: start: 20170414, end: 20170419
  33. DUODOPA [Suspect]
     Active Substance: CARBIDOPA\LEVODOPA
     Dosage: MD: 9 ML, CD: 4 ML/HR X 13 HR, ED: 2.6 ML/UNIT X 3
     Route: 050
     Dates: start: 20170912, end: 20170926
  34. DUODOPA [Suspect]
     Active Substance: CARBIDOPA\LEVODOPA
     Dosage: MD: 9.5 ML, CD: 4.2 ML/HR X 13 HR, ED: 3.2 ML/UNIT X 3
     Route: 050
     Dates: start: 20180710, end: 20180817
  35. DUODOPA [Suspect]
     Active Substance: CARBIDOPA\LEVODOPA
     Dosage: MD: 9.5 ML, CD: 4.2 ML/HR X 13 HR, ED: 3.0 ML/UNIT X 3
     Route: 050
     Dates: start: 20180817, end: 20181222
  36. BOTOX [Suspect]
     Active Substance: ONABOTULINUMTOXINA
     Indication: PRODUCT USED FOR UNKNOWN INDICATION
     Route: 030
     Dates: start: 20180717, end: 20180717
  37. ROTIGOTINE [Concomitant]
     Active Substance: ROTIGOTINE
     Route: 062
     Dates: start: 20170328, end: 20170511
  38. NITRAZEPAM [Concomitant]
     Active Substance: NITRAZEPAM
     Indication: PRODUCT USED FOR UNKNOWN INDICATION
     Route: 048
  39. LEVODOPA/CARBIDOPA HYDRATE [Concomitant]
     Indication: PRODUCT USED FOR UNKNOWN INDICATION
     Route: 048
     Dates: start: 20170516
  40. LEVODOPA/CARBIDOPA HYDRATE [Concomitant]
     Route: 048
     Dates: start: 20181223, end: 20181224
  41. ENTACAPONE. [Concomitant]
     Active Substance: ENTACAPONE
     Indication: PRODUCT USED FOR UNKNOWN INDICATION
     Dates: start: 20170412
  42. DUODOPA [Suspect]
     Active Substance: CARBIDOPA\LEVODOPA
     Dosage: MD: 6 ML, CD: 3.7 ML/HR X 16 HR, ED: 2 ML/UNIT X 1
     Route: 050
     Dates: start: 20170223, end: 20170224
  43. DUODOPA [Suspect]
     Active Substance: CARBIDOPA\LEVODOPA
     Dosage: MD: 6 ML, CD: 3.9 ML/HR X 16 HR, ED: 2 ML/UNIT X 1
     Route: 050
     Dates: start: 20170227, end: 20170301
  44. DICLOFENAC SODIUM. [Concomitant]
     Active Substance: DICLOFENAC SODIUM
     Indication: PRODUCT USED FOR UNKNOWN INDICATION
     Dosage: Q.S
     Dates: start: 20170808, end: 20170912
  45. FURSULTIAMINE [Concomitant]
     Active Substance: FURSULTIAMINE
     Route: 048
     Dates: start: 20171225
  46. DUODOPA [Suspect]
     Active Substance: CARBIDOPA\LEVODOPA
     Dosage: MD: 9 ML, CD: 4.6 ML/HR X 16 HR, ED: 3 ML/UNIT X 2
     Route: 050
     Dates: start: 20170317, end: 20170405
  47. DUODOPA [Suspect]
     Active Substance: CARBIDOPA\LEVODOPA
     Dosage: MD: 9 ML, CD: 3.8 ML/HR X 16 HR, ED: 2.6 ML/UNIT X 2
     Route: 050
     Dates: start: 20170425, end: 20170502
  48. DUODOPA [Suspect]
     Active Substance: CARBIDOPA\LEVODOPA
     Dosage: MD: 9.5 ML, CD: 4.2 ML/HR X 13 HR, ED: 2.7 ML/UNIT X 3
     Route: 050
     Dates: start: 20180704, end: 20180710
  49. BOTOX [Suspect]
     Active Substance: ONABOTULINUMTOXINA
     Route: 030
     Dates: start: 20190219, end: 20190219
  50. LEVODOPA/CARBIDOPA HYDRATE [Concomitant]
     Route: 048
     Dates: start: 20181225, end: 20181225
  51. DUODOPA [Suspect]
     Active Substance: CARBIDOPA\LEVODOPA
     Dosage: MD: 8 ML, CD: 2.7 ML/HR X 16 HR, ED: 1 ML/UNIT X 1
     Route: 050
     Dates: start: 20170217, end: 20170220
  52. DUODOPA [Suspect]
     Active Substance: CARBIDOPA\LEVODOPA
     Dosage: MD: 8 ML, CD: 2.9 ML/HR X 16 HR, ED: 1 ML/UNIT X 1
     Route: 050
     Dates: start: 20170220, end: 20170221
  53. DUODOPA [Suspect]
     Active Substance: CARBIDOPA\LEVODOPA
     Dosage: MD: 6 ML, CD: 4.4 ML/HR X 16 HR, ED: 3 ML/UNIT X 2
     Route: 050
     Dates: start: 20170303, end: 20170310
  54. DUODOPA [Suspect]
     Active Substance: CARBIDOPA\LEVODOPA
     Dosage: MD: 9 ML, CD: 4.2 ML/HR X 16 HR, ED: 3 ML/UNIT X 2
     Route: 050
     Dates: start: 20170411, end: 20170414
  55. DUODOPA [Suspect]
     Active Substance: CARBIDOPA\LEVODOPA
     Dosage: MD: 9 ML, CD: 4.2 ML/HR X 13 HR, ED: 2.7 ML/UNIT X 3
     Route: 050
     Dates: start: 20180227, end: 20180704
  56. QUETIAPINE FUMARATE. [Concomitant]
     Active Substance: QUETIAPINE FUMARATE
     Dates: start: 20170424, end: 20170507
  57. LEVODOPA/CARBIDOPA HYDRATE [Concomitant]
     Route: 048
     Dates: start: 20181223, end: 20181224
  58. PYRIDOXAL PHOSPHATE HYDRATE [Concomitant]
     Route: 048
     Dates: start: 20171226

REACTIONS (24)
  - Incision site dermatitis [Recovered/Resolved]
  - Device issue [Recovered/Resolved]
  - Urticaria chronic [Recovering/Resolving]
  - Stoma site hypergranulation [Recovered/Resolved]
  - Hallucination [Recovered/Resolved]
  - Dysphagia [Recovered/Resolved]
  - Vitamin B1 deficiency [Recovered/Resolved]
  - Device dislocation [Recovered/Resolved]
  - Pain in extremity [Not Recovered/Not Resolved]
  - Gastrooesophageal reflux disease [Recovered/Resolved]
  - On and off phenomenon [Recovering/Resolving]
  - Unintentional medical device removal [Recovered/Resolved]
  - Abdominal pain [Recovered/Resolved]
  - Device kink [Recovered/Resolved]
  - Pain in extremity [Not Recovered/Not Resolved]
  - Dystonia [Not Recovered/Not Resolved]
  - Dysphagia [Recovered/Resolved]
  - Stoma site infection [Recovered/Resolved]
  - Device issue [Recovered/Resolved]
  - Delusion [Recovered/Resolved]
  - Delusion [Recovered/Resolved]
  - Pneumonia aspiration [Recovered/Resolved]
  - Device breakage [Recovered/Resolved]
  - Torticollis [Recovering/Resolving]

NARRATIVE: CASE EVENT DATE: 20170216
